FAERS Safety Report 21943935 (Version 1)
Quarter: 2023Q1

REPORT INFORMATION
  Report Type: Spontaneous
  Country: TN (occurrence: TN)
  Receive Date: 20230202
  Receipt Date: 20230202
  Transmission Date: 20230418
  Serious: Yes (Other)
  Sender: FDA-Public Use
  Company Number: TN-ALS-000867

PATIENT
  Age: 19 Year
  Sex: Male

DRUGS (2)
  1. QUETIAPINE [Suspect]
     Active Substance: QUETIAPINE
     Indication: Schizophrenia
     Dosage: QUETIAPINE 400 MG/DAY
     Route: 065
  2. VALPROIC ACID [Concomitant]
     Active Substance: VALPROIC ACID
     Indication: Schizophrenia
     Dosage: 1500 MG/DAY OF VALPROIC ACID OVER A THREE-WEEK TITRATION
     Route: 065

REACTIONS (1)
  - Thrombocytopenic purpura [Recovered/Resolved]
